FAERS Safety Report 9779572 (Version 1)
Quarter: 2013Q4

REPORT INFORMATION
  Report Type: Spontaneous
  Country: FR (occurrence: FR)
  Receive Date: 20131223
  Receipt Date: 20131223
  Transmission Date: 20140711
  Serious: Yes (Other)
  Sender: FDA-Public Use
  Company Number: FR-ASTRAZENECA-2013SE92475

PATIENT
  Sex: Female

DRUGS (2)
  1. XEROQUEL [Suspect]
     Indication: BIPOLAR DISORDER
     Route: 048
     Dates: start: 201306
  2. ANTIDEPRESSANT DRUG [Concomitant]

REACTIONS (1)
  - Visual impairment [Not Recovered/Not Resolved]
